FAERS Safety Report 16265241 (Version 2)
Quarter: 2019Q2

REPORT INFORMATION
  Report Type: Report from Study
  Country: US (occurrence: US)
  Receive Date: 20190502
  Receipt Date: 20190514
  Transmission Date: 20190711
  Serious: Yes (Hospitalization, Other)
  Sender: FDA-Public Use
  Company Number: US-RETROPHIN, INC.-2019RTN00031

PATIENT
  Age: 3 Year
  Sex: Male
  Weight: 11 kg

DRUGS (11)
  1. CHOLIC ACID [Suspect]
     Active Substance: CHOLIC ACID
     Dosage: 50 MG, 2X/DAY
     Route: 048
     Dates: start: 20180319
  2. POTASSIUM AND SODIUM PHOSPHATE [Concomitant]
     Dosage: 0.5 DOSAGE UNITS, 1X/DAY
     Route: 048
  3. HYDROCORTISONE. [Concomitant]
     Active Substance: HYDROCORTISONE
     Dosage: 2.5 MG, 2X/DAY
  4. VITAMIN K [Concomitant]
     Active Substance: PHYTONADIONE
     Dosage: 5 MG, 1X/DAY
     Route: 048
  5. POTASSIUM CITRATE-CITRIC ACID [Concomitant]
     Active Substance: CITRIC ACID MONOHYDRATE\POTASSIUM CITRATE
     Dosage: 4 ML, 2X/DAY
     Route: 048
  6. CHOLIC ACID [Suspect]
     Active Substance: CHOLIC ACID
     Indication: CEREBROHEPATORENAL SYNDROME
     Dosage: 50 MG, 1X/DAY
     Route: 048
     Dates: start: 20170309, end: 20180318
  7. DUOCAL [Concomitant]
     Dosage: MIX 68 G WITH NEOCATE JR/PREBIOTICS FOR A TOTAL OF 56 OZ, 1X/DAY
  8. FERROUS SULFATE. [Concomitant]
     Active Substance: FERROUS SULFATE
     Dosage: 22.5 MG, 2X/DAY
     Route: 048
  9. HYDROCORTISONE SODIUM SUCCINATE [Concomitant]
     Active Substance: HYDROCORTISONE SODIUM SUCCINATE
     Dosage: 25 MG, AS NEEDED
     Route: 030
  10. NEOCATE JR WITH PREBIOTICS [Concomitant]
     Dosage: MIX WITH DUOCAL FOR A TOTAL OF 56 OZ, 1X/DAY
  11. OMEPRAZOLE. [Concomitant]
     Active Substance: OMEPRAZOLE
     Dosage: 10 MG, 1X/DAY
     Route: 048

REACTIONS (5)
  - Gastrointestinal haemorrhage [Recovered/Resolved]
  - Hypoglycaemia [Recovered/Resolved]
  - Influenza [Recovered/Resolved]
  - Candida nappy rash [Not Recovered/Not Resolved]
  - Gastritis [Recovered/Resolved]

NARRATIVE: CASE EVENT DATE: 20171127
